FAERS Safety Report 8515846 (Version 2)
Quarter: 2013Q3

REPORT INFORMATION
  Report Type: Spontaneous
  Country: US (occurrence: US)
  Receive Date: 20120417
  Receipt Date: 20130917
  Transmission Date: 20140515
  Serious: Yes (Other)
  Sender: FDA-Public Use
  Company Number: US-ROCHE-793904

PATIENT
  Age: 26 Year
  Sex: Female
  Weight: 66.74 kg

DRUGS (1)
  1. ACCUTANE [Suspect]
     Indication: ACNE
     Route: 065
     Dates: start: 19950920, end: 19960430

REACTIONS (5)
  - Inflammatory bowel disease [Unknown]
  - Irritable bowel syndrome [Unknown]
  - Lip dry [Unknown]
  - Migraine [Unknown]
  - Blood cholesterol increased [Unknown]
